FAERS Safety Report 6868169-7 (Version None)
Quarter: 2010Q3

REPORT INFORMATION
  Report Type: 
  Country: None (occurrence: None)
  Receive Date: 20100722
  Receipt Date: 20080516
  Transmission Date: 20110219
  Serious: No
  Sender: FDA-Public Use
  Company Number: US-PFIZER INC-2008042696

PATIENT
  Sex: Male
  Weight: 113.6 kg

DRUGS (4)
  1. CHANTIX [Suspect]
     Indication: SMOKING CESSATION THERAPY
     Route: 048
     Dates: start: 20080401
  2. QUETIAPINE FUMARATE [Concomitant]
     Route: 048
  3. ATIVAN [Concomitant]
     Route: 048
  4. ADDERALL XR 10 [Concomitant]
     Route: 048

REACTIONS (4)
  - DEPRESSED MOOD [None]
  - DEPRESSION [None]
  - HYPERSOMNIA [None]
  - MOOD ALTERED [None]
